FAERS Safety Report 7208336-6 (Version None)
Quarter: 2011Q1

REPORT INFORMATION
  Report Type: 
  Country: None (occurrence: None)
  Receive Date: 20110104
  Receipt Date: 20101220
  Transmission Date: 20110831
  Serious: No
  Sender: FDA-Public Use
  Company Number: PHHY2010NZ49646

PATIENT

DRUGS (2)
  1. GLEEVEC [Suspect]
     Dosage: 800 MG
     Route: 064
  2. GLEEVEC [Suspect]
     Route: 064

REACTIONS (1)
  - DRUG EXPOSURE DURING PREGNANCY [None]
